FAERS Safety Report 5561033-5 (Version None)
Quarter: 2007Q4

REPORT INFORMATION
  Report Type: 
  Country: None (occurrence: None)
  Receive Date: 20071215
  Receipt Date: 20071128
  Transmission Date: 20080405
  Serious: No
  Sender: FDA-Public Use
  Company Number: US-ABBOTT-07P-163-0427044-00

PATIENT
  Sex: Female
  Weight: 58.112 kg

DRUGS (7)
  1. HUMIRA [Suspect]
     Indication: CROHN'S DISEASE
     Route: 058
     Dates: start: 20071001, end: 20071015
  2. HUMIRA [Suspect]
     Route: 058
     Dates: start: 20071015, end: 20071029
  3. HUMIRA [Suspect]
     Route: 058
     Dates: start: 20071029
  4. AZATHIOPRINE [Concomitant]
     Indication: DRUG USE FOR UNKNOWN INDICATION
  5. PANTOPRAZOLE SODIUM [Concomitant]
     Indication: DRUG USE FOR UNKNOWN INDICATION
  6. COLESTIPOL HYDROCHLORIDE [Concomitant]
     Indication: DRUG USE FOR UNKNOWN INDICATION
  7. CRYSTALLINE VIT B12 INJ [Concomitant]
     Indication: DRUG USE FOR UNKNOWN INDICATION
     Route: 030

REACTIONS (1)
  - INJECTION SITE IRRITATION [None]
